FAERS Safety Report 5883541-X (Version None)
Quarter: 2008Q3

REPORT INFORMATION
  Report Type: 
  Country: None (occurrence: None)
  Receive Date: 20080915
  Receipt Date: 20080905
  Transmission Date: 20090109
  Serious: Yes (Hospitalization)
  Sender: FDA-Public Use
  Company Number: PHHY2008CA20546

PATIENT
  Sex: Female

DRUGS (1)
  1. DIOVAN [Suspect]
     Dosage: 80 MG, UNK
     Route: 048

REACTIONS (6)
  - BREAST CANCER [None]
  - DIABETES MELLITUS [None]
  - FATIGUE [None]
  - FIBROMYALGIA [None]
  - POISONING [None]
  - SURGERY [None]
